FAERS Safety Report 16583108 (Version 1)
Quarter: 2019Q3

REPORT INFORMATION
  Report Type: Spontaneous
  Country: US (occurrence: US)
  Receive Date: 20190603
  Receipt Date: 20190603
  Transmission Date: 20191004
  Serious: Yes (Hospitalization)
  Sender: FDA-Public Use
  Company Number: None

PATIENT
  Age: 39 Year
  Sex: Female

DRUGS (1)
  1. SOFOSBUVIR / VELPATASVIR 400-100MG [Suspect]
     Active Substance: SOFOSBUVIR\VELPATASVIR
     Indication: HEPATITIS C
     Route: 048
     Dates: start: 201905

REACTIONS (8)
  - Nausea [None]
  - Seizure [None]
  - Diarrhoea [None]
  - Headache [None]
  - Blood potassium decreased [None]
  - Muscle spasms [None]
  - Product dose omission [None]
  - Arthralgia [None]

NARRATIVE: CASE EVENT DATE: 20190603
